FAERS Safety Report 22530712 (Version 1)
Quarter: 2023Q2

REPORT INFORMATION
  Report Type: Spontaneous
  Country: US (occurrence: US)
  Receive Date: 20230607
  Receipt Date: 20230607
  Transmission Date: 20230721
  Serious: No
  Sender: FDA-Public Use
  Company Number: US-SA-SAC20230605001015

PATIENT
  Age: 8 Year
  Sex: Female
  Weight: 24.94 kg

DRUGS (10)
  1. DUPIXENT [Suspect]
     Active Substance: DUPILUMAB
     Indication: Dermatitis atopic
     Dosage: UNK
     Route: 058
     Dates: start: 20230301
  2. DUPIXENT [Suspect]
     Active Substance: DUPILUMAB
     Dosage: 300 MG, Q4W
     Route: 058
  3. CEPHALEXIN [Concomitant]
     Active Substance: CEPHALEXIN
  4. SULFAMETHOXAZOLE\TRIMETHOPRIM [Concomitant]
     Active Substance: SULFAMETHOXAZOLE\TRIMETHOPRIM
  5. HYDROXYZINE HYDROCHLORIDE [Concomitant]
     Active Substance: HYDROXYZINE HYDROCHLORIDE
  6. DESONIDE [Concomitant]
     Active Substance: DESONIDE
  7. TRIAMCINOLONE ACETONIDE [Concomitant]
     Active Substance: TRIAMCINOLONE ACETONIDE
  8. TACROLIMUS [Concomitant]
     Active Substance: TACROLIMUS
  9. VANICREAM [Concomitant]
     Active Substance: TITANIUM DIOXIDE\ZINC OXIDE
  10. BIFIDOBACTERIUM ANIMALIS LACTIS [Concomitant]
     Active Substance: BIFIDOBACTERIUM ANIMALIS LACTIS

REACTIONS (6)
  - Eczema [Not Recovered/Not Resolved]
  - Eyelid irritation [Unknown]
  - Urinary tract infection [Unknown]
  - Injection site pain [Unknown]
  - Product dose omission issue [Unknown]
  - Dermatitis atopic [Unknown]

NARRATIVE: CASE EVENT DATE: 20230401
